FAERS Safety Report 16574770 (Version 1)
Quarter: 2019Q3

REPORT INFORMATION
  Report Type: Report from Study
  Country: IT (occurrence: IT)
  Receive Date: 20190715
  Receipt Date: 20190715
  Transmission Date: 20191004
  Serious: Yes (Other)
  Sender: FDA-Public Use
  Company Number: IT-ELI_LILLY_AND_COMPANY-IT201907002114

PATIENT
  Sex: Female

DRUGS (1)
  1. TERIPARATIDE [Suspect]
     Active Substance: TERIPARATIDE
     Indication: PRODUCT USED FOR UNKNOWN INDICATION
     Dosage: UNK, UNKNOWN
     Route: 065
     Dates: start: 201809

REACTIONS (7)
  - Syncope [Unknown]
  - Blood sodium decreased [Unknown]
  - Renal failure [Unknown]
  - Headache [Unknown]
  - Gastrointestinal disorder [Unknown]
  - Herpes zoster [Unknown]
  - Loss of consciousness [Unknown]
